FAERS Safety Report 13343717 (Version 1)
Quarter: 2017Q1

REPORT INFORMATION
  Report Type: Report from Study
  Country: US (occurrence: US)
  Receive Date: 20170316
  Receipt Date: 20170316
  Transmission Date: 20170428
  Serious: Yes (Hospitalization, Other)
  Sender: FDA-Public Use
  Company Number: PHHO2015US016085

PATIENT
  Age: 44 Year
  Sex: Male
  Weight: 85.6 kg

DRUGS (10)
  1. TRAMETINIB [Suspect]
     Active Substance: TRAMETINIB
     Dosage: 2 MG, QD
     Route: 048
  2. METFORMIN [Concomitant]
     Active Substance: METFORMIN HYDROCHLORIDE
     Indication: PRODUCT USED FOR UNKNOWN INDICATION
     Dosage: 1 G, BID
     Route: 065
  3. DABRAFENIB [Suspect]
     Active Substance: DABRAFENIB
     Dosage: 50 MG, BID
     Route: 048
  4. DABRAFENIB [Suspect]
     Active Substance: DABRAFENIB
     Indication: ERDHEIM-CHESTER DISEASE
     Dosage: 150 MG, BID
     Route: 048
     Dates: start: 20150129
  5. DABRAFENIB [Suspect]
     Active Substance: DABRAFENIB
     Dosage: 50 MG, BID
     Route: 048
     Dates: start: 20150618, end: 20150713
  6. TRAMETINIB [Suspect]
     Active Substance: TRAMETINIB
     Indication: ERDHEIM-CHESTER DISEASE
     Dosage: 2 MG, QD
     Route: 048
     Dates: start: 20150129
  7. TRAMETINIB [Suspect]
     Active Substance: TRAMETINIB
     Dosage: 2 MG, QD
     Route: 048
     Dates: start: 20150618, end: 20150713
  8. IBUPROFEN. [Suspect]
     Active Substance: IBUPROFEN
     Indication: PAIN
     Dosage: 800 MG, 1 TO 2 TIMES PER DAY
     Route: 048
     Dates: end: 20150713
  9. AMOXICILLIN. [Suspect]
     Active Substance: AMOXICILLIN
     Indication: PHARYNGITIS STREPTOCOCCAL
     Dosage: UNK
     Route: 065
     Dates: start: 201505, end: 201505
  10. FENOFIBRATE. [Concomitant]
     Active Substance: FENOFIBRATE
     Indication: PRODUCT USED FOR UNKNOWN INDICATION
     Dosage: 145 MG, QD
     Route: 065

REACTIONS (1)
  - Tubulointerstitial nephritis [Not Recovered/Not Resolved]

NARRATIVE: CASE EVENT DATE: 20150803
